FAERS Safety Report 15372350 (Version 3)
Quarter: 2018Q4

REPORT INFORMATION
  Report Type: Spontaneous
  Country: FR (occurrence: FR)
  Receive Date: 20180911
  Receipt Date: 20181026
  Transmission Date: 20190204
  Serious: Yes (Life-Threatening, Other)
  Sender: FDA-Public Use
  Company Number: FR-BRISTOL-MYERS SQUIBB COMPANY-BMS-2018-063028

PATIENT
  Age: 57 Year
  Sex: Female

DRUGS (2)
  1. CORTANCYL [Concomitant]
     Active Substance: PREDNISONE
     Indication: PRODUCT USED FOR UNKNOWN INDICATION
     Dosage: 10 MG, UNK
     Route: 065
  2. NULOJIX [Suspect]
     Active Substance: BELATACEPT
     Indication: PROPHYLAXIS AGAINST TRANSPLANT REJECTION
     Dosage: UNK UNK, QMO
     Route: 042
     Dates: start: 201212, end: 201709

REACTIONS (2)
  - Posterior reversible encephalopathy syndrome [Unknown]
  - Progressive multifocal leukoencephalopathy [Recovering/Resolving]

NARRATIVE: CASE EVENT DATE: 201704
